FAERS Safety Report 5335326-0 (Version None)
Quarter: 2007Q2

REPORT INFORMATION
  Report Type: 
  Country: None (occurrence: None)
  Receive Date: 20070327
  Receipt Date: 20060409
  Transmission Date: 20071010
  Serious: Yes (Hospitalization)
  Sender: FDA-Public Use
  Company Number: HQWYE774511APR06

PATIENT
  Sex: Female
  Weight: 72.64 kg

DRUGS (2)
  1. PROTONIX [Suspect]
     Indication: GASTROOESOPHAGEAL REFLUX DISEASE
     Dosage: 40 MG 1X PER 1 DAY ORAL
     Route: 048
     Dates: start: 20060323, end: 20060401
  2. FLUOXETINE [Concomitant]
     Dosage: 20MG / DAY

REACTIONS (3)
  - BLOOD GLUCOSE INCREASED [None]
  - POLLAKIURIA [None]
  - THIRST [None]
